FAERS Safety Report 16842266 (Version 1)
Quarter: 2019Q3

REPORT INFORMATION
  Report Type: Spontaneous
  Country: BR (occurrence: BR)
  Receive Date: 20190924
  Receipt Date: 20190924
  Transmission Date: 20191005
  Serious: Yes (Hospitalization, Other)
  Sender: FDA-Public Use
  Company Number: BR-ROCHE-2416675

PATIENT
  Sex: Male
  Weight: 81 kg

DRUGS (1)
  1. GAZYVA [Suspect]
     Active Substance: OBINUTUZUMAB
     Indication: CHRONIC LYMPHOCYTIC LEUKAEMIA
     Route: 042

REACTIONS (8)
  - Respiratory distress [Unknown]
  - Hypertension [Unknown]
  - Oxygen saturation decreased [Unknown]
  - Seizure [Unknown]
  - Tachycardia [Unknown]
  - Tremor [Unknown]
  - Agitation [Unknown]
  - Confusional state [Unknown]
